FAERS Safety Report 10504075 (Version 1)
Quarter: 2014Q4

REPORT INFORMATION
  Report Type: Spontaneous
  Country: US (occurrence: US)
  Receive Date: 20141008
  Receipt Date: 20141008
  Transmission Date: 20150528
  Serious: No
  Sender: FDA-Public Use
  Company Number: US-BEH-2013038256

PATIENT
  Sex: Male
  Weight: 55 kg

DRUGS (9)
  1. LMX [Concomitant]
     Active Substance: LIDOCAINE
  2. DEXTROSE. [Concomitant]
     Active Substance: DEXTROSE
  3. ACETAMINOPHEN. [Concomitant]
     Active Substance: ACETAMINOPHEN
  4. EPIPEN [Concomitant]
     Active Substance: EPINEPHRINE
  5. PRIVIGEN [Suspect]
     Active Substance: HUMAN IMMUNOGLOBULIN G
     Indication: CHRONIC SINUSITIS
     Route: 042
  6. DIPHENHYDRAMINE [Concomitant]
     Active Substance: DIPHENHYDRAMINE
  7. HEPARIN [Concomitant]
     Active Substance: HEPARIN SODIUM
  8. SODIUM CHLORIDE. [Concomitant]
     Active Substance: SODIUM CHLORIDE
  9. PRIVIGEN [Suspect]
     Active Substance: HUMAN IMMUNOGLOBULIN G
     Indication: IMMUNODEFICIENCY COMMON VARIABLE
     Route: 042

REACTIONS (1)
  - Sinusitis [Unknown]
